FAERS Safety Report 4919932-0 (Version None)
Quarter: 2006Q1

REPORT INFORMATION
  Report Type: 
  Country: None (occurrence: None)
  Receive Date: 20060216
  Receipt Date: 20060213
  Transmission Date: 20060701
  Serious: Yes (Death, Hospitalization, Other)
  Sender: FDA-Public Use
  Company Number: 2005119185

PATIENT
  Age: 43 Year
  Sex: Male
  Weight: 70 kg

DRUGS (6)
  1. NEURONTIN [Suspect]
     Indication: EPILEPSY
     Dosage: 1200 MG 1 IN 1 D ORAL
     Route: 048
     Dates: start: 20040311
  2. SUSTIVA [Suspect]
     Indication: EPILEPSY
     Dosage: 600 MG (1 IN 1 D) ORAL
     Route: 048
     Dates: start: 20020203, end: 20050425
  3. ZIAGEN [Suspect]
     Indication: HIV INFECTION
     Dosage: 600 MG (1 IN 1 D) ORAL
     Route: 048
     Dates: start: 20020203, end: 20050425
  4. VIREAD [Suspect]
     Indication: HIV INFECTION
     Dosage: 245 MG (1 IN 1D) ORAL
     Route: 048
     Dates: start: 20020203, end: 20050425
  5. VIRAFERONPEG [Suspect]
     Indication: HEPATITIS C
     Dosage: 80 MCG (1 IN 1 D) SUBCUTANEOUS
     Route: 058
     Dates: start: 20041112, end: 20050425
  6. RIBAVIRIN [Suspect]
     Indication: HEPATITIS C
     Dosage: 1000 MG (1 IN 1 D)ORAL
     Route: 048
     Dates: start: 20041112, end: 20050425

REACTIONS (24)
  - AGITATION [None]
  - BLOOD LACTIC ACID INCREASED [None]
  - CARDIAC ARREST [None]
  - COMA [None]
  - CONDITION AGGRAVATED [None]
  - CONFUSIONAL STATE [None]
  - DISORIENTATION [None]
  - DYSARTHRIA [None]
  - ELECTROENCEPHALOGRAM ABNORMAL [None]
  - EPILEPSY [None]
  - HAEMOLYTIC ANAEMIA [None]
  - HEPATOMEGALY [None]
  - HERPES SIMPLEX SEROLOGY POSITIVE [None]
  - HYPOREFLEXIA [None]
  - LYMPHADENOPATHY [None]
  - NERVOUS SYSTEM DISORDER [None]
  - PARVOVIRUS B19 SEROLOGY POSITIVE [None]
  - PERICARDIAL EFFUSION [None]
  - PETECHIAE [None]
  - PYREXIA [None]
  - TACHYCARDIA [None]
  - TACHYPNOEA [None]
  - THERAPY NON-RESPONDER [None]
  - THROMBOTIC THROMBOCYTOPENIC PURPURA [None]
